FAERS Safety Report 9331242 (Version 1)
Quarter: 2013Q2

REPORT INFORMATION
  Report Type: Spontaneous
  Country: AU (occurrence: AU)
  Receive Date: 20130605
  Receipt Date: 20130605
  Transmission Date: 20140414
  Serious: Yes (Other)
  Sender: FDA-Public Use
  Company Number: AU-PFIZER INC-2013168891

PATIENT
  Sex: Female

DRUGS (1)
  1. ZOLOFT [Suspect]
     Dosage: 200 MG, UNK

REACTIONS (3)
  - Type 2 diabetes mellitus [Unknown]
  - Weight increased [Unknown]
  - Abdominal distension [Unknown]
